FAERS Safety Report 4679891-5 (Version None)
Quarter: 2005Q2

REPORT INFORMATION
  Report Type: 
  Country: None (occurrence: None)
  Receive Date: 20050602
  Receipt Date: 20050308
  Transmission Date: 20051028
  Serious: Yes (Other)
  Sender: FDA-Public Use
  Company Number: US-GLAXOSMITHKLINE-A0548829A

PATIENT
  Age: 52 Year
  Sex: Female

DRUGS (5)
  1. AUGMENTIN [Suspect]
     Indication: SINUSITIS
     Dosage: 875MG TWICE PER DAY
     Route: 048
     Dates: start: 20050208, end: 20050218
  2. PRILOSEC [Concomitant]
  3. CELEXA [Concomitant]
  4. COUMADIN [Concomitant]
  5. TOPROL-XL [Concomitant]

REACTIONS (1)
  - LIVER FUNCTION TEST ABNORMAL [None]
